FAERS Safety Report 25416843 (Version 1)
Quarter: 2025Q2

REPORT INFORMATION
  Report Type: Spontaneous
  Country: IN (occurrence: IN)
  Receive Date: 20250610
  Receipt Date: 20250610
  Transmission Date: 20250717
  Serious: Yes (Life-Threatening)
  Sender: MACLEODS
  Company Number: IN-MLMSERVICE-20250522-PI517664-00218-2

PATIENT

DRUGS (9)
  1. ABACAVIR\LAMIVUDINE [Suspect]
     Active Substance: ABACAVIR\LAMIVUDINE
     Indication: HIV infection
     Route: 048
  2. DOLUTEGRAVIR [Suspect]
     Active Substance: DOLUTEGRAVIR
     Indication: HIV infection
     Route: 048
  3. METHOTREXATE [Suspect]
     Active Substance: METHOTREXATE
     Indication: Plasmablastic lymphoma
     Route: 065
  4. CYCLOPHOSPHAMIDE [Concomitant]
     Active Substance: CYCLOPHOSPHAMIDE
     Indication: Plasmablastic lymphoma
     Route: 065
  5. VINCRISTINE [Concomitant]
     Active Substance: VINCRISTINE
     Indication: Plasmablastic lymphoma
     Route: 065
  6. DOXORUBICIN [Concomitant]
     Active Substance: DOXORUBICIN
     Indication: Plasmablastic lymphoma
     Route: 065
  7. IFOSFAMIDE [Concomitant]
     Active Substance: IFOSFAMIDE
     Indication: Plasmablastic lymphoma
     Route: 065
  8. ETOPOSIDE [Concomitant]
     Active Substance: ETOPOSIDE
     Indication: Plasmablastic lymphoma
     Route: 065
  9. CYTARABINE [Concomitant]
     Active Substance: CYTARABINE
     Indication: Plasmablastic lymphoma
     Route: 065

REACTIONS (2)
  - Hypertransaminasaemia [Recovered/Resolved]
  - Drug interaction [Recovered/Resolved]
